FAERS Safety Report 17544308 (Version 2)
Quarter: 2020Q1

REPORT INFORMATION
  Report Type: Report from Study
  Country: KR (occurrence: KR)
  Receive Date: 20200316
  Receipt Date: 20200331
  Transmission Date: 20200409
  Serious: Yes (Hospitalization)
  Sender: FDA-Public Use
  Company Number: KR-ASTELLAS-2020US008536

PATIENT
  Age: 55 Year
  Sex: Female
  Weight: 39 kg

DRUGS (6)
  1. ASG-22CE [Suspect]
     Active Substance: ENFORTUMAB VEDOTIN
     Dosage: 1.25 MG/KG, D1, D8, D15 PER EVERY 4 WEEKS
     Route: 042
  2. LEVODROPROPIZINE [Concomitant]
     Active Substance: LEVODROPROPIZINE
     Indication: COUGH
     Dosage: 1 T, THRICE DAILY
     Route: 048
     Dates: start: 20191213, end: 20200302
  3. ULTRACET ER SEMI [Concomitant]
     Indication: PLEURITIC PAIN
     Dosage: 1T (650/75MG), THRICE DAILY
     Route: 048
     Dates: start: 20191116, end: 20200302
  4. TAPENTADOL [Concomitant]
     Active Substance: TAPENTADOL
     Indication: MUSCULOSKELETAL CHEST PAIN
     Dosage: 1 T, THRICE DAILY
     Route: 048
     Dates: start: 20191125, end: 20200302
  5. ASG-22CE [Suspect]
     Active Substance: ENFORTUMAB VEDOTIN
     Indication: BLADDER CANCER
     Dosage: 1.25 MG/KG, D1, D8, D15 PER EVERY 4 WEEKS
     Route: 042
     Dates: start: 20191206
  6. MOXIFLOXACIN. [Concomitant]
     Active Substance: MOXIFLOXACIN
     Indication: PNEUMONITIS
     Dosage: 1T, ONCE DAILY
     Route: 048
     Dates: start: 20200221, end: 20200302

REACTIONS (1)
  - Organising pneumonia [Not Recovered/Not Resolved]

NARRATIVE: CASE EVENT DATE: 20200302
